FAERS Safety Report 8833377 (Version 2)
Quarter: 2012Q4

REPORT INFORMATION
  Report Type: 
  Country: US (occurrence: US)
  Receive Date: 20121010
  Receipt Date: 20121214
  Transmission Date: 20130627
  Serious: Yes (Hospitalization, Other)
  Sender: FDA-Public Use
  Company Number: US-PFIZER INC-2012249187

PATIENT
  Age: 86 Year
  Sex: Female
  Weight: 50.79 kg

DRUGS (2)
  1. REVATIO [Suspect]
     Indication: PULMONARY HYPERTENSION
     Dosage: 20 mg, 3x/day
     Route: 048
     Dates: start: 2012
  2. SINGULAIR [Concomitant]
     Indication: ASTHMA
     Dosage: UNK

REACTIONS (7)
  - Cerebrovascular accident [Unknown]
  - Hip fracture [Not Recovered/Not Resolved]
  - Myocardial infarction [Unknown]
  - Fall [Unknown]
  - Presyncope [Unknown]
  - Pain in extremity [Unknown]
  - Headache [Unknown]
